FAERS Safety Report 21601891 (Version 2)
Quarter: 2022Q4

REPORT INFORMATION
  Report Type: Spontaneous
  Country: CA (occurrence: None)
  Receive Date: 20221116
  Receipt Date: 20221118
  Transmission Date: 20230113
  Serious: No
  Sender: FDA-Public Use
  Company Number: CA-ROCHE-3219930

PATIENT
  Age: 44 Year
  Sex: Female

DRUGS (1)
  1. OCREVUS [Suspect]
     Active Substance: OCRELIZUMAB
     Indication: Multiple sclerosis
     Dosage: 300 MG/ML
     Route: 042
     Dates: start: 20181204

REACTIONS (2)
  - Vulvovaginal pruritus [Unknown]
  - Fungal infection [Unknown]

NARRATIVE: CASE EVENT DATE: 20221115
